FAERS Safety Report 4698882-1 (Version None)
Quarter: 2005Q2

REPORT INFORMATION
  Report Type: 
  Country: None (occurrence: None)
  Receive Date: 20050624
  Receipt Date: 20050420
  Transmission Date: 20051028
  Serious: Yes (Hospitalization)
  Sender: FDA-Public Use
  Company Number: 200513330US

PATIENT
  Age: 47 Year
  Sex: Male

DRUGS (11)
  1. LANTUS [Suspect]
     Dosage: DOSE UNIT: UNITS
     Dates: start: 20050413, end: 20050413
  2. BUPROPION [Concomitant]
  3. METFORMIN HCL [Concomitant]
  4. LASIX [Concomitant]
  5. MULTIVITAMINS, PLAIN [Concomitant]
  6. LIPITOR [Concomitant]
  7. DIOVAN HCT [Concomitant]
  8. ZETIA                                   /USA/ [Concomitant]
  9. COREG [Concomitant]
  10. ASPIRIN [Concomitant]
  11. ACTOS [Concomitant]
     Dates: end: 20050411

REACTIONS (6)
  - BLOOD GLUCOSE INCREASED [None]
  - DIZZINESS [None]
  - HYPOGLYCAEMIA [None]
  - HYPOGLYCAEMIC COMA [None]
  - HYPOGLYCAEMIC SEIZURE [None]
  - VOMITING [None]
